FAERS Safety Report 23022421 (Version 2)
Quarter: 2023Q4

REPORT INFORMATION
  Report Type: Spontaneous
  Country: JP (occurrence: None)
  Receive Date: 20231003
  Receipt Date: 20231023
  Transmission Date: 20240109
  Serious: Yes (Death)
  Sender: FDA-Public Use
  Company Number: 2023A223340

PATIENT
  Age: 90 Year
  Sex: Male

DRUGS (2)
  1. ONDEXXYA [Suspect]
     Active Substance: ANDEXANET ALFA
     Indication: Cerebral haemorrhage
     Dosage: 1800.0MG UNKNOWN
     Route: 042
     Dates: start: 20230922, end: 20230922
  2. EDOXABAN TOSYLATE [Concomitant]
     Active Substance: EDOXABAN TOSYLATE
     Dosage: UNKNOWN

REACTIONS (1)
  - Atrial fibrillation [Fatal]

NARRATIVE: CASE EVENT DATE: 20230927
